FAERS Safety Report 8467877-4 (Version None)
Quarter: 2012Q2

REPORT INFORMATION
  Report Type: 
  Country: None (occurrence: None)
  Receive Date: 20120626
  Receipt Date: 20120618
  Transmission Date: 20120825
  Serious: Yes (Death)
  Sender: FDA-Public Use
  Company Number: AR-ROCHE-1079773

PATIENT
  Sex: Female
  Weight: 60 kg

DRUGS (4)
  1. GEMCITABINE HYDROCHLORIDE [Suspect]
     Indication: PRODUCT USED FOR UNKNOWN INDICATION
  2. CISPLATIN [Suspect]
     Indication: PRODUCT USED FOR UNKNOWN INDICATION
  3. AVASTIN [Suspect]
     Indication: PRODUCT USED FOR UNKNOWN INDICATION
  4. TARCEVA [Suspect]
     Indication: LUNG NEOPLASM MALIGNANT
     Route: 048
     Dates: start: 20120201, end: 20120521

REACTIONS (2)
  - RASH [None]
  - NEOPLASM MALIGNANT [None]
